FAERS Safety Report 4582163-0 (Version None)
Quarter: 2005Q1

REPORT INFORMATION
  Report Type: 
  Country: None (occurrence: None)
  Receive Date: 20050210
  Receipt Date: 20041124
  Transmission Date: 20050727
  Serious: Yes (Hospitalization)
  Sender: FDA-Public Use
  Company Number: 2004098207

PATIENT
  Age: 56 Year
  Sex: Female

DRUGS (9)
  1. EPIRUBICIN [Suspect]
     Indication: BREAST CANCER
     Dosage: 150 MG, EVERY 21 DAYS, INTRAVENOUS
     Route: 042
     Dates: start: 20041108, end: 20041108
  2. DOCETAXEL (DOCETAXEL) [Suspect]
     Indication: BREAST CANCER
     Dosage: 150 MG, EVERY 21 DAYS, INTRAVENOUS
     Route: 042
     Dates: start: 20041108, end: 20041108
  3. CYCLOPHOSPHAMIDE [Suspect]
     Indication: BREAST CANCER
     Dosage: 1000 MG EVERY 21 DAYS, INTRAVENOUS
     Route: 042
     Dates: start: 20041108, end: 20041108
  4. PROCHLORPERAZINE EDISYLATE [Concomitant]
  5. ONDANSETRON HCL [Concomitant]
  6. DEXAMETHASONE [Concomitant]
  7. FUROSEMIDE [Concomitant]
  8. GRANISETRON (GRANISETRON) [Concomitant]
  9. DARBEPOETIN ALFA (DARBEPOETIN) [Concomitant]

REACTIONS (5)
  - BLOOD PRESSURE DIASTOLIC DECREASED [None]
  - CONDITION AGGRAVATED [None]
  - DIABETES MELLITUS [None]
  - HEART RATE INCREASED [None]
  - RESPIRATORY RATE INCREASED [None]
